FAERS Safety Report 23349211 (Version 1)
Quarter: 2023Q4

REPORT INFORMATION
  Report Type: Spontaneous
  Country: CN (occurrence: None)
  Receive Date: 20231229
  Receipt Date: 20231229
  Transmission Date: 20240109
  Serious: Yes (Other)
  Sender: FDA-Public Use
  Company Number: CN-ROCHE-3483016

PATIENT
  Age: 49 Year
  Sex: Female
  Weight: 51 kg

DRUGS (3)
  1. PYROTINIB [Suspect]
     Active Substance: PYROTINIB
     Indication: Breast cancer
     Route: 048
     Dates: start: 20230803, end: 20230803
  2. HERCEPTIN [Suspect]
     Active Substance: TRASTUZUMAB
     Indication: Breast cancer
     Route: 041
     Dates: start: 20230803, end: 20230803
  3. PACLITAXEL [Suspect]
     Active Substance: PACLITAXEL
     Indication: Breast cancer
     Route: 041
     Dates: start: 20230803, end: 20230803

REACTIONS (1)
  - Myelosuppression [Recovering/Resolving]

NARRATIVE: CASE EVENT DATE: 20230807
